FAERS Safety Report 14656721 (Version 1)
Quarter: 2018Q1

REPORT INFORMATION
  Report Type: Spontaneous
  Country: US (occurrence: US)
  Receive Date: 20180319
  Receipt Date: 20180319
  Transmission Date: 20180509
  Serious: No
  Sender: FDA-Public Use
  Company Number: US-SA-2017SA031985

PATIENT
  Age: 40 Year
  Sex: Female

DRUGS (1)
  1. NASACORT ALLERGY 24HR [Suspect]
     Active Substance: TRIAMCINOLONE ACETONIDE
     Dosage: FREQUENCY WAS 2-3 TIMES IN ONE DAY, DOSE WAS 2 SPRAYS EACH SIDE
     Route: 065
     Dates: start: 20170215, end: 20170215

REACTIONS (1)
  - Drug ineffective [Unknown]
